FAERS Safety Report 8798225 (Version 2)
Quarter: 2015Q1

REPORT INFORMATION
  Report Type: Report from Study
  Country: US (occurrence: US)
  Receive Date: 20120920
  Receipt Date: 20150311
  Transmission Date: 20150721
  Serious: Yes (Death)
  Sender: FDA-Public Use
  Company Number: US-ROCHE-1123747

PATIENT
  Sex: Female

DRUGS (8)
  1. ZOMETA [Concomitant]
     Active Substance: ZOLEDRONIC ACID
     Route: 042
  2. TYLENOL [Concomitant]
     Active Substance: ACETAMINOPHEN
     Route: 048
  3. AVASTIN [Suspect]
     Active Substance: BEVACIZUMAB
     Route: 042
     Dates: start: 20071012
  4. BENADRYL [Concomitant]
     Active Substance: DIPHENHYDRAMINE HYDROCHLORIDE
     Route: 042
  5. ARANESP [Concomitant]
     Active Substance: DARBEPOETIN ALFA
     Route: 058
  6. AVASTIN [Suspect]
     Active Substance: BEVACIZUMAB
     Indication: BREAST CANCER FEMALE
     Dosage: SECOND TREATMENT CYCLE ON 19/SEP/2007
     Route: 042
     Dates: start: 20070805
  7. DEXAMETHASONE. [Concomitant]
     Active Substance: DEXAMETHASONE
     Route: 042
  8. TAXOL [Concomitant]
     Active Substance: PACLITAXEL
     Route: 042

REACTIONS (2)
  - Death [Fatal]
  - Headache [Unknown]
